FAERS Safety Report 8510036-7 (Version None)
Quarter: 2012Q3

REPORT INFORMATION
  Report Type: 
  Country: None (occurrence: None)
  Receive Date: 20120713
  Receipt Date: 20120703
  Transmission Date: 20120928
  Serious: No
  Sender: FDA-Public Use
  Company Number: US-ASTRAZENECA-2012SE45178

PATIENT
  Age: 54 Year
  Sex: Male
  Weight: 79.4 kg

DRUGS (2)
  1. SEROQUEL [Suspect]
     Route: 048
  2. VITAMIN TAB [Concomitant]

REACTIONS (1)
  - ALOPECIA [None]
